FAERS Safety Report 11333621 (Version 1)
Quarter: 2015Q3

REPORT INFORMATION
  Report Type: Spontaneous
  Country: US (occurrence: US)
  Receive Date: 20150803
  Receipt Date: 20150803
  Transmission Date: 20151125
  Serious: No
  Sender: FDA-Public Use
  Company Number: US-ELI_LILLY_AND_COMPANY-US200802004899

PATIENT
  Sex: Female
  Weight: 71.2 kg

DRUGS (1)
  1. ZYPREXA [Suspect]
     Active Substance: OLANZAPINE
     Dates: start: 1992

REACTIONS (4)
  - Blood glucose abnormal [Unknown]
  - Endocrine disorder [Unknown]
  - Hypertension [Not Recovered/Not Resolved]
  - Diabetes mellitus [Unknown]
